FAERS Safety Report 8835256 (Version 2)
Quarter: 2012Q4

REPORT INFORMATION
  Report Type: 
  Country: US (occurrence: US)
  Receive Date: 20121011
  Receipt Date: 20121101
  Transmission Date: 20130627
  Serious: Yes (Hospitalization, Other)
  Sender: FDA-Public Use
  Company Number: US-PFIZER INC-2012249716

PATIENT
  Age: 76 Year
  Sex: Male
  Weight: 88.44 kg

DRUGS (3)
  1. REVATIO [Suspect]
     Indication: PULMONARY HYPERTENSION
     Dosage: 10 mg, 3x/day
     Dates: start: 2012
  2. REVATIO [Suspect]
     Dosage: 20 mg, 3x/day
     Dates: start: 201209, end: 20121010
  3. REVATIO [Suspect]
     Dosage: UNK
     Route: 048
     Dates: end: 20121009

REACTIONS (1)
  - Renal failure [Unknown]
